FAERS Safety Report 25185492 (Version 2)
Quarter: 2025Q2

REPORT INFORMATION
  Report Type: Spontaneous
  Country: US (occurrence: US)
  Receive Date: 20250410
  Receipt Date: 20250523
  Transmission Date: 20250716
  Serious: No
  Sender: VERTEX
  Company Number: US-VERTEX PHARMACEUTICALS-2025-005213

PATIENT
  Age: 48 Year
  Sex: Female

DRUGS (6)
  1. JOURNAVX [Suspect]
     Active Substance: SUZETRIGINE
     Indication: Procedural pain
     Dosage: 2 TABLETS (50MG EACH), SINGLE
     Route: 048
     Dates: start: 20250328, end: 20250328
  2. COLESTIPOL [Concomitant]
     Active Substance: COLESTIPOL
  3. LOSARTAN [Concomitant]
     Active Substance: LOSARTAN
  4. OMEPRAZOLE [Concomitant]
     Active Substance: OMEPRAZOLE
  5. LOPERAMIDE [Concomitant]
     Active Substance: LOPERAMIDE
     Dosage: 2 MG, QD (AS NEEDED)
  6. NARATRIPTAN [Concomitant]
     Active Substance: NARATRIPTAN HYDROCHLORIDE
     Dosage: 2.5 MG, QD (AS NEEDED)

REACTIONS (2)
  - Paraesthesia [Recovered/Resolved]
  - Skin burning sensation [Recovered/Resolved]

NARRATIVE: CASE EVENT DATE: 20250328
